FAERS Safety Report 11412135 (Version 1)
Quarter: 2015Q3

REPORT INFORMATION
  Report Type: Spontaneous
  Country: US (occurrence: US)
  Receive Date: 20150821
  Receipt Date: 20150821
  Transmission Date: 20151125
  Serious: No
  Sender: FDA-Public Use
  Company Number: US-ELI_LILLY_AND_COMPANY-US201202007290

PATIENT
  Age: 82 Year
  Sex: Male

DRUGS (3)
  1. HUMULIN R [Suspect]
     Active Substance: INSULIN HUMAN
     Indication: DIABETES MELLITUS
     Dosage: 28 U, EACH MORNING
     Dates: start: 2010
  2. HUMULIN R [Suspect]
     Active Substance: INSULIN HUMAN
     Dosage: 33 U, EACH EVENING
     Dates: start: 2010
  3. HUMULIN R [Suspect]
     Active Substance: INSULIN HUMAN
     Dosage: 28 U, IN THE AFTERNOON
     Dates: start: 2010

REACTIONS (3)
  - Medication error [Unknown]
  - Nasopharyngitis [Unknown]
  - Tremor [Not Recovered/Not Resolved]
